FAERS Safety Report 11158087 (Version 2)
Quarter: 2015Q4

REPORT INFORMATION
  Report Type: Report from Study
  Country: CA (occurrence: CA)
  Receive Date: 20150603
  Receipt Date: 20151222
  Transmission Date: 20160304
  Serious: Yes (Other)
  Sender: FDA-Public Use
  Company Number: CA-ROCHE-1347329

PATIENT
  Age: 34 Year
  Sex: Female

DRUGS (6)
  1. RITUXAN [Suspect]
     Active Substance: RITUXIMAB
     Indication: GRANULOMATOSIS WITH POLYANGIITIS
     Dosage: FREQUENCY: DAY 1 AND 15?LAST DOSE OF RITUXIMAB : 02/OCT/2014
     Route: 042
     Dates: start: 20140129
  2. NYSTATIN. [Concomitant]
     Active Substance: NYSTATIN
  3. PREDNISONE. [Concomitant]
     Active Substance: PREDNISONE
  4. BACTRIM [Concomitant]
     Active Substance: SULFAMETHOXAZOLE\TRIMETHOPRIM
  5. FOLIC ACID. [Concomitant]
     Active Substance: FOLIC ACID
  6. VASOTEC [Concomitant]
     Active Substance: ENALAPRIL MALEATE

REACTIONS (6)
  - Throat irritation [Recovered/Resolved]
  - Sinus congestion [Recovered/Resolved]
  - Infusion related reaction [Recovered/Resolved]
  - Bladder disorder [Unknown]
  - Post procedural haemorrhage [Unknown]
  - Dysuria [Recovering/Resolving]

NARRATIVE: CASE EVENT DATE: 20140129
